FAERS Safety Report 12309703 (Version 3)
Quarter: 2016Q2

REPORT INFORMATION
  Report Type: Spontaneous
  Country: CA (occurrence: CA)
  Receive Date: 20160427
  Receipt Date: 20160607
  Transmission Date: 20160815
  Serious: Yes (Death)
  Sender: FDA-Public Use
  Company Number: CA-TOLMAR, INC.-2016CA003983

PATIENT

DRUGS (11)
  1. ELIGARD [Suspect]
     Active Substance: LEUPROLIDE ACETATE
     Indication: PRODUCT USED FOR UNKNOWN INDICATION
     Dosage: 30 MG, EVERY 4 MONTHS
     Route: 065
     Dates: start: 20140514, end: 20160114
  2. TAMSULOSIN [Concomitant]
     Active Substance: TAMSULOSIN
  3. METOPROLOL. [Concomitant]
     Active Substance: METOPROLOL
  4. ATIVAN [Concomitant]
     Active Substance: LORAZEPAM
  5. VENLAFAXINE [Concomitant]
     Active Substance: VENLAFAXINE HYDROCHLORIDE
  6. COVERSYL                           /00790702/ [Concomitant]
     Active Substance: PERINDOPRIL
  7. CALCIUM [Concomitant]
     Active Substance: CALCIUM
  8. ASA [Concomitant]
     Active Substance: ASPIRIN
  9. ATORVASTATIN [Concomitant]
     Active Substance: ATORVASTATIN
  10. VITAMIN D                          /00107901/ [Concomitant]
     Active Substance: ERGOCALCIFEROL
  11. NITROSPRAY [Concomitant]

REACTIONS (1)
  - Cardiac arrest [Fatal]
